FAERS Safety Report 12158074 (Version 1)
Quarter: 2016Q1

REPORT INFORMATION
  Report Type: Spontaneous
  Country: US (occurrence: None)
  Receive Date: 20160307
  Receipt Date: 20160307
  Transmission Date: 20160526
  Serious: Yes (Disabling)
  Sender: FDA-Public Use
  Company Number: None

PATIENT
  Age: 54 Year
  Sex: Female
  Weight: 45.36 kg

DRUGS (14)
  1. TRINTELLIX [Concomitant]
     Active Substance: VORTIOXETINE HYDROBROMIDE
  2. SPRIX NASAL SOLUTION [Concomitant]
  3. MULTIVITAMIN [Concomitant]
     Active Substance: VITAMINS
  4. BOTOX [Suspect]
     Active Substance: ONABOTULINUMTOXINA
     Indication: MIGRAINE
     Dosage: 31 TINY INJECTIONS  ONE TIME  INJECTIONS THROUGH HEAD AND NECK
     Dates: start: 20151231, end: 20151231
  5. SUMATRIPTAN. [Concomitant]
     Active Substance: SUMATRIPTAN
  6. NARATRIPTAN [Concomitant]
     Active Substance: NARATRIPTAN HYDROCHLORIDE
  7. OMEGA 3 [Concomitant]
     Active Substance: OMEGA-3 FATTY ACIDS
  8. RESTASIS [Concomitant]
     Active Substance: CYCLOSPORINE
  9. CLONAZEPAM. [Concomitant]
     Active Substance: CLONAZEPAM
  10. EXTRA VITAMIN D [Concomitant]
  11. LORAZEPAM. [Concomitant]
     Active Substance: LORAZEPAM
  12. PROBIOTICS [Concomitant]
     Active Substance: PROBIOTICS NOS
  13. DRY EYE DROPS [Concomitant]
  14. CANDESARTAN [Concomitant]
     Active Substance: CANDESARTAN

REACTIONS (7)
  - Trismus [None]
  - Facial paralysis [None]
  - Neck pain [None]
  - Back pain [None]
  - Eyelid ptosis [None]
  - Musculoskeletal pain [None]
  - Pain in extremity [None]

NARRATIVE: CASE EVENT DATE: 20151231
